FAERS Safety Report 7586200-0 (Version None)
Quarter: 2011Q2

REPORT INFORMATION
  Report Type: 
  Country: None (occurrence: None)
  Receive Date: 20110630
  Receipt Date: 20110630
  Transmission Date: 20111010
  Serious: Yes (Other)
  Sender: FDA-Public Use
  Company Number: None

PATIENT
  Age: 59 Year
  Sex: Female
  Weight: 93 kg

DRUGS (1)
  1. FLEBOGAMMA [Suspect]
     Dosage: 40 GM ONCE IV
     Route: 042
     Dates: start: 20110426, end: 20110622

REACTIONS (3)
  - MALAISE [None]
  - INFUSION RELATED REACTION [None]
  - BACK PAIN [None]
